FAERS Safety Report 7728901-7 (Version None)
Quarter: 2011Q3

REPORT INFORMATION
  Report Type: 
  Country: None (occurrence: None)
  Receive Date: 20110817
  Receipt Date: 20110613
  Transmission Date: 20111222
  Serious: Yes (Other)
  Sender: FDA-Public Use
  Company Number: 201110634

PATIENT
  Sex: Male

DRUGS (7)
  1. METHADONE HCL [Concomitant]
  2. DILAUDID [Concomitant]
  3. OXYCONTIN [Concomitant]
  4. LIORESAL [Suspect]
     Indication: MUSCLE SPASTICITY
     Dosage: MCG, DAILY, INTRATHECAL
     Route: 039
  5. BUPIVACAINE HCL [Concomitant]
  6. LORTAB [Concomitant]
  7. CLONIDINE [Concomitant]

REACTIONS (4)
  - PAIN IN EXTREMITY [None]
  - MUSCULOSKELETAL PAIN [None]
  - WEIGHT DECREASED [None]
  - HYPOAESTHESIA [None]
